FAERS Safety Report 21925014 (Version 2)
Quarter: 2023Q1

REPORT INFORMATION
  Report Type: Spontaneous
  Country: US (occurrence: US)
  Receive Date: 20230130
  Receipt Date: 20230220
  Transmission Date: 20230417
  Serious: No
  Sender: FDA-Public Use
  Company Number: US-SA-SAC20230124000458

PATIENT
  Age: 63 Year
  Sex: Female

DRUGS (1)
  1. KEVZARA [Suspect]
     Active Substance: SARILUMAB
     Indication: Rheumatoid arthritis
     Dosage: 200 MG, QOW
     Route: 058
     Dates: start: 202211

REACTIONS (5)
  - COVID-19 [Unknown]
  - Blood potassium decreased [Unknown]
  - Heart rate increased [Unknown]
  - Hypertension [Unknown]
  - Post procedural infection [Unknown]

NARRATIVE: CASE EVENT DATE: 20221101
